FAERS Safety Report 6021928-5 (Version None)
Quarter: 2008Q4

REPORT INFORMATION
  Report Type: 
  Country: None (occurrence: None)
  Receive Date: 20081223
  Receipt Date: 20081215
  Transmission Date: 20090506
  Serious: Yes (Hospitalization)
  Sender: FDA-Public Use
  Company Number: 236233J08USA

PATIENT
  Age: 54 Year
  Sex: Female
  Weight: 76 kg

DRUGS (6)
  1. REBIF [Suspect]
     Indication: MULTIPLE SCLEROSIS
     Dosage: 44 MCG, 3 IN 1 WEEKS, SUBCUTANEOUS
     Route: 058
     Dates: start: 20071027
  2. XANAX [Suspect]
  3. SINEMET [Concomitant]
  4. ENALAPRIL (ENALAPRIL /00574901) [Concomitant]
  5. SYNTHROID [Concomitant]
  6. VICODIN [Concomitant]

REACTIONS (4)
  - ANKLE FRACTURE [None]
  - ASTHENIA [None]
  - FALL [None]
  - HYPOAESTHESIA [None]
